FAERS Safety Report 7502152-3 (Version None)
Quarter: 2011Q2

REPORT INFORMATION
  Report Type: 
  Country: None (occurrence: None)
  Receive Date: 20110523
  Receipt Date: 20110523
  Transmission Date: 20111010
  Serious: Yes (Hospitalization)
  Sender: FDA-Public Use
  Company Number: None

PATIENT
  Age: 39 Year
  Sex: Male
  Weight: 88.6 kg

DRUGS (1)
  1. BUPROPION HCL [Suspect]
     Dosage: 150 MG BID PO
     Route: 048
     Dates: start: 20101228, end: 20110311

REACTIONS (2)
  - PSYCHOTIC DISORDER [None]
  - DELIRIUM [None]
